FAERS Safety Report 9931133 (Version 1)
Quarter: 2014Q1

REPORT INFORMATION
  Report Type: Report from Study
  Country: AR (occurrence: AR)
  Receive Date: 20140227
  Receipt Date: 20140227
  Transmission Date: 20141002
  Serious: Yes (Death, Hospitalization)
  Sender: FDA-Public Use
  Company Number: PHHY2014AR024392

PATIENT
  Age: 56 Year
  Sex: Female

DRUGS (1)
  1. TRILEPTAL [Suspect]
     Dosage: 600 MG, UNK
     Route: 048

REACTIONS (4)
  - Haemorrhage [Fatal]
  - Head injury [Unknown]
  - Loss of consciousness [Not Recovered/Not Resolved]
  - Fall [Unknown]
